FAERS Safety Report 13929287 (Version 1)
Quarter: 2017Q3

REPORT INFORMATION
  Report Type: Spontaneous
  Country: US (occurrence: US)
  Receive Date: 20170901
  Receipt Date: 20170901
  Transmission Date: 20171127
  Serious: Yes (Hospitalization)
  Sender: FDA-Public Use
  Company Number: None

PATIENT
  Age: 64 Year
  Sex: Female
  Weight: 115.5 kg

DRUGS (12)
  1. METRONIDAZOLE. [Concomitant]
     Active Substance: METRONIDAZOLE
  2. LITHIUM CARBONATE. [Suspect]
     Active Substance: LITHIUM CARBONATE
     Indication: BIPOLAR DISORDER
     Route: 048
  3. IBUPROPION SR [Concomitant]
  4. LASIX [Concomitant]
     Active Substance: FUROSEMIDE
  5. EFFEXOR XR EXTENDED-RELEASE [Concomitant]
     Active Substance: VENLAFAXINE HYDROCHLORIDE
  6. BETHANECHOL [Concomitant]
     Active Substance: BETHANECHOL
  7. POTASSIUM CHLORIDE ER [Concomitant]
     Active Substance: POTASSIUM CHLORIDE
  8. LEVOFLOXACIN. [Concomitant]
     Active Substance: LEVOFLOXACIN
  9. LISINOPRIL. [Concomitant]
     Active Substance: LISINOPRIL
  10. NOROC [Concomitant]
  11. XARELTO [Concomitant]
     Active Substance: RIVAROXABAN
  12. LAMOTRIGINE. [Concomitant]
     Active Substance: LAMOTRIGINE

REACTIONS (10)
  - Blood pressure abnormal [None]
  - Diarrhoea [None]
  - Dysuria [None]
  - Clostridium difficile infection [None]
  - Blood urea increased [None]
  - Toxicity to various agents [None]
  - Blood creatinine increased [None]
  - Dehydration [None]
  - Asthenia [None]
  - Fatigue [None]

NARRATIVE: CASE EVENT DATE: 20170831
